FAERS Safety Report 4511458-1 (Version None)
Quarter: 2004Q4

REPORT INFORMATION
  Report Type: 
  Country: None (occurrence: None)
  Receive Date: 20041129
  Receipt Date: 20040819
  Transmission Date: 20050328
  Serious: No
  Sender: FDA-Public Use
  Company Number: US-BRISTOL-MYERS SQUIBB COMPANY-12677506

PATIENT
  Sex: Male

DRUGS (1)
  1. ABILIFY [Suspect]
     Indication: TOURETTE'S DISORDER
     Dosage: DECREASED TO 5 MG/DAY, THEN DISCONTINUED.

REACTIONS (2)
  - DYSPHASIA [None]
  - MUSCULOSKELETAL STIFFNESS [None]
